FAERS Safety Report 14609773 (Version 1)
Quarter: 2018Q1

REPORT INFORMATION
  Report Type: Report from Study
  Country: ES (occurrence: ES)
  Receive Date: 20180307
  Receipt Date: 20180307
  Transmission Date: 20180509
  Serious: Yes (Hospitalization, Other)
  Sender: FDA-Public Use
  Company Number: ES-PFIZER INC-2018092401

PATIENT
  Age: 55 Year
  Sex: Female

DRUGS (8)
  1. PREGABALIN. [Concomitant]
     Active Substance: PREGABALIN
     Dosage: 75 MG, UNK
     Route: 048
     Dates: start: 20170510
  2. ENANTYUM [Concomitant]
     Active Substance: DEXKETOPROFEN TROMETAMOL
     Indication: TOOTHACHE
     Dosage: 25 MG, UNK
     Route: 048
     Dates: start: 20170508, end: 20170518
  3. PARACETAMOL [Concomitant]
     Active Substance: ACETAMINOPHEN
     Indication: PYREXIA
     Route: 048
     Dates: start: 20170203, end: 20170203
  4. AMOXICILLIN. [Concomitant]
     Active Substance: AMOXICILLIN
     Indication: TOOTHACHE
     Dosage: 750 MG, UNK
     Route: 048
     Dates: start: 20170508, end: 20170518
  5. PACLITAXEL. [Suspect]
     Active Substance: PACLITAXEL
     Indication: BREAST CANCER
     Dosage: 80 MG/M2, WEEKLY
     Route: 042
     Dates: start: 20170202, end: 20170712
  6. AVASTIN [Suspect]
     Active Substance: BEVACIZUMAB
     Indication: BREAST CANCER
     Dosage: 10 MG/KG, UNK
     Route: 042
     Dates: start: 20170202
  7. VASELINE PURE [Concomitant]
     Active Substance: PETROLATUM
     Dosage: UNK
     Route: 061
     Dates: start: 20170403, end: 20170410
  8. ZOMETA [Concomitant]
     Active Substance: ZOLEDRONIC ACID
     Dosage: 4 MG, UNK
     Route: 048
     Dates: start: 20170202

REACTIONS (20)
  - Asthenia [Recovering/Resolving]
  - Tooth infection [Recovered/Resolved]
  - Skin hyperpigmentation [Recovered/Resolved]
  - Pyrexia [Recovered/Resolved]
  - Nail pigmentation [Recovered/Resolved]
  - Skin hyperpigmentation [Recovered/Resolved]
  - Nail disorder [Recovering/Resolving]
  - Scab [Recovered/Resolved]
  - Rash [Recovered/Resolved]
  - Hypertension [Recovered/Resolved]
  - Laryngitis [Recovered/Resolved]
  - Diarrhoea [Recovered/Resolved]
  - Erythema [Recovered/Resolved]
  - Mouth ulceration [Recovered/Resolved]
  - Pain in extremity [Recovered/Resolved]
  - Epistaxis [Recovering/Resolving]
  - Pseudomonas infection [Recovered/Resolved]
  - Neuropathy peripheral [Recovering/Resolving]
  - Dysphonia [Recovered/Resolved]
  - Hypertension [Recovered/Resolved]

NARRATIVE: CASE EVENT DATE: 20170202
